FAERS Safety Report 21877707 (Version 2)
Quarter: 2023Q1

REPORT INFORMATION
  Report Type: Spontaneous
  Country: US (occurrence: US)
  Receive Date: 20230118
  Receipt Date: 20230217
  Transmission Date: 20230418
  Serious: No
  Sender: FDA-Public Use
  Company Number: US-FDC-2022USSPO00206

PATIENT
  Age: 71 Year
  Sex: Female
  Weight: 122 kg

DRUGS (1)
  1. TIMOLOL MALEATE [Suspect]
     Active Substance: TIMOLOL MALEATE
     Indication: Glaucoma
     Route: 047
     Dates: start: 20221213, end: 20221214

REACTIONS (5)
  - Malaise [Recovering/Resolving]
  - Eye swelling [Recovering/Resolving]
  - Swelling face [Not Recovered/Not Resolved]
  - Erythema [Recovering/Resolving]
  - Ocular hyperaemia [Recovering/Resolving]

NARRATIVE: CASE EVENT DATE: 20221214
